FAERS Safety Report 7338335-5 (Version None)
Quarter: 2011Q1

REPORT INFORMATION
  Report Type: 
  Country: None (occurrence: None)
  Receive Date: 20110308
  Receipt Date: 20110225
  Transmission Date: 20110831
  Serious: Yes (Disabling, Other)
  Sender: FDA-Public Use
  Company Number: US-BAYER-2011-018304

PATIENT
  Sex: Male

DRUGS (8)
  1. SINGULAIR [Concomitant]
     Dosage: FOR A WHILE
  2. ADVIL LIQUI-GELS [Concomitant]
  3. MUCINEX [Concomitant]
     Dosage: FOR A WHILE
  4. INDOCIN [Concomitant]
  5. CIPRO [Suspect]
     Indication: SINUSITIS
     Dosage: STOP DATE: ABOUT A WEEK TO 10 DAYS
     Route: 048
     Dates: start: 20110209
  6. PRIMIDONE [Concomitant]
  7. PREDNISONE TAB [Concomitant]
     Indication: SINUSITIS
     Dosage: 10 MG, QID
  8. FLOXIN OTIC [Concomitant]
     Dosage: 6 -8 MONTHS AGO

REACTIONS (2)
  - GAIT DISTURBANCE [None]
  - JOINT CREPITATION [None]
